FAERS Safety Report 9277479 (Version 3)
Quarter: 2013Q4

REPORT INFORMATION
  Report Type: Spontaneous
  Country: US (occurrence: US)
  Receive Date: 20130508
  Receipt Date: 20131119
  Transmission Date: 20140711
  Serious: Yes (Hospitalization)
  Sender: FDA-Public Use
  Company Number: US-BAYER-2013-054790

PATIENT
  Age: 45 Year
  Sex: Female
  Weight: 63.49 kg

DRUGS (18)
  1. YAZ [Suspect]
     Indication: PREMENSTRUAL DYSPHORIC DISORDER
  2. YAZ [Suspect]
     Indication: PREMENSTRUAL SYNDROME
  3. YAZ [Suspect]
     Indication: MENSTRUAL CYCLE MANAGEMENT
  4. YAZ [Suspect]
     Indication: ENDOMETRIOSIS
  5. YASMIN [Suspect]
     Indication: PREMENSTRUAL DYSPHORIC DISORDER
     Dosage: UNK
     Dates: start: 2006, end: 2007
  6. YASMIN [Suspect]
     Indication: PREMENSTRUAL SYNDROME
  7. YASMIN [Suspect]
     Indication: MENSTRUAL CYCLE MANAGEMENT
  8. YASMIN [Suspect]
     Indication: ENDOMETRIOSIS
  9. OCELLA [Suspect]
     Indication: PREMENSTRUAL DYSPHORIC DISORDER
     Dosage: UNK
  10. OCELLA [Suspect]
     Indication: PREMENSTRUAL SYNDROME
  11. OCELLA [Suspect]
     Indication: MENSTRUAL CYCLE MANAGEMENT
  12. OCELLA [Suspect]
     Indication: ENDOMETRIOSIS
  13. EPSOM SALT [Concomitant]
     Indication: PAIN
  14. BENGAY ORIGINAL FORMULA PAIN RELIEVING [Concomitant]
     Indication: PAIN
  15. SEROQUEL [Concomitant]
     Indication: MENTAL DISORDER
  16. SOMA [Concomitant]
     Indication: MUSCLE SPASMS
  17. METOPROLOL [Concomitant]
     Indication: HYPERTENSION
  18. LOVASTATIN [Concomitant]
     Indication: BLOOD CHOLESTEROL INCREASED

REACTIONS (6)
  - Myocardial infarction [None]
  - Injury [None]
  - Emotional distress [None]
  - Anxiety [None]
  - Psychological trauma [None]
  - Chest pain [None]
